FAERS Safety Report 8281101-7 (Version None)
Quarter: 2012Q2

REPORT INFORMATION
  Report Type: 
  Country: None (occurrence: None)
  Receive Date: 20120413
  Receipt Date: 20120409
  Transmission Date: 20120825
  Serious: Yes (Other)
  Sender: FDA-Public Use
  Company Number: US-BRISTOL-MYERS SQUIBB COMPANY-16509200

PATIENT
  Age: 83 Year
  Sex: Female

DRUGS (1)
  1. ORENCIA [Suspect]
     Dosage: STARTED IN JUL OR AUG11;LAST INFUSION ON 02FEB12
     Dates: start: 20110101

REACTIONS (2)
  - BACK PAIN [None]
  - ARTHROPATHY [None]
